FAERS Safety Report 8260427-7 (Version None)
Quarter: 2012Q2

REPORT INFORMATION
  Report Type: 
  Country: None (occurrence: None)
  Receive Date: 20120404
  Receipt Date: 20120329
  Transmission Date: 20120825
  Serious: Yes (Hospitalization)
  Sender: FDA-Public Use
  Company Number: PHHY2012JP027292

PATIENT
  Age: 64 Year
  Sex: Female

DRUGS (1)
  1. MEXILETINE HYDROCHLORIDE [Suspect]

REACTIONS (9)
  - ERYTHEMA [None]
  - DRUG RASH WITH EOSINOPHILIA AND SYSTEMIC SYMPTOMS [None]
  - HEPATIC FUNCTION ABNORMAL [None]
  - RASH MACULO-PAPULAR [None]
  - EOSINOPHILIA [None]
  - HUMAN HERPESVIRUS 6 INFECTION [None]
  - PYREXIA [None]
  - PURPURA [None]
  - LEUKOCYTOSIS [None]
